FAERS Safety Report 23395844 (Version 1)
Quarter: 2024Q1

REPORT INFORMATION
  Report Type: Other
  Country: GB (occurrence: GB)
  Receive Date: 20240112
  Receipt Date: 20240112
  Transmission Date: 20240409
  Serious: Yes (Life-Threatening, Disabling, Other)
  Sender: FDA-Public Use
  Company Number: GB-MACLEODS PHARMACEUTICALS US LTD-MAC2024045270

PATIENT

DRUGS (1)
  1. ARIPIPRAZOLE [Suspect]
     Active Substance: ARIPIPRAZOLE
     Indication: Bipolar disorder
     Dosage: UNK (300MG DEPOT INJECTION)
     Route: 065
     Dates: start: 20231104, end: 20231204

REACTIONS (5)
  - Skin oedema [Not Recovered/Not Resolved]
  - Medication error [Unknown]
  - Pruritus genital [Not Recovered/Not Resolved]
  - Penile blister [Not Recovered/Not Resolved]
  - Dry skin [Unknown]

NARRATIVE: CASE EVENT DATE: 20231201
